FAERS Safety Report 14751063 (Version 1)
Quarter: 2018Q2

REPORT INFORMATION
  Report Type: Spontaneous
  Country: US (occurrence: US)
  Receive Date: 20180412
  Receipt Date: 20180412
  Transmission Date: 20180711
  Serious: No
  Sender: FDA-Public Use
  Company Number: US-BAYER-2018-064736

PATIENT
  Age: 95 Year
  Sex: Male
  Weight: 61 kg

DRUGS (3)
  1. METOPROLOL. [Concomitant]
     Active Substance: METOPROLOL
  2. CLARITIN [Suspect]
     Active Substance: LORATADINE
     Indication: PHARYNGEAL OEDEMA
     Dosage: 1 DF, QD
     Route: 048
     Dates: start: 2018
  3. CLARITIN [Suspect]
     Active Substance: LORATADINE
     Indication: THROAT IRRITATION

REACTIONS (2)
  - Therapeutic response unexpected [Unknown]
  - Product use in unapproved indication [Unknown]
